FAERS Safety Report 25199945 (Version 1)
Quarter: 2025Q2

REPORT INFORMATION
  Report Type: Spontaneous
  Country: AU (occurrence: AU)
  Receive Date: 20250415
  Receipt Date: 20250415
  Transmission Date: 20250716
  Serious: Yes (Other)
  Sender: TAKEDA
  Company Number: AU-TAKEDA-2025TUS035541

PATIENT
  Age: 32 Year
  Sex: Female

DRUGS (1)
  1. VYVANSE [Suspect]
     Active Substance: LISDEXAMFETAMINE DIMESYLATE
     Indication: Attention deficit hyperactivity disorder
     Dosage: 60 MILLIGRAM, QD
     Dates: start: 202407, end: 20250320

REACTIONS (8)
  - Anxiety [Unknown]
  - Condition aggravated [Unknown]
  - Dermatillomania [Unknown]
  - Dry mouth [Unknown]
  - Insomnia [Unknown]
  - Muscle tightness [Unknown]
  - Social avoidant behaviour [Unknown]
  - Therapeutic product effect decreased [Not Recovered/Not Resolved]

NARRATIVE: CASE EVENT DATE: 20241001
